FAERS Safety Report 9870444 (Version 2)
Quarter: 2014Q1

REPORT INFORMATION
  Report Type: Spontaneous
  Country: CH (occurrence: CH)
  Receive Date: 20140205
  Receipt Date: 20140207
  Transmission Date: 20141002
  Serious: Yes (Other)
  Sender: FDA-Public Use
  Company Number: CH-ABBVIE-14P-151-1197972-00

PATIENT
  Age: 45 Year
  Sex: Female

DRUGS (4)
  1. DEPAKINE CHRONO [Suspect]
     Indication: EPILEPSY
     Route: 065
     Dates: end: 20120417
  2. FLUCTINE [Suspect]
     Indication: EPILEPSY
     Route: 065
  3. TEGRETOL [Suspect]
     Indication: EPILEPSY
     Route: 065
  4. CARBAMAZEPINE [Concomitant]
     Indication: PRODUCT USED FOR UNKNOWN INDICATION
     Dosage: (PREV.)
     Dates: start: 2001

REACTIONS (2)
  - Abortion induced [Unknown]
  - Complication of pregnancy [Unknown]
